FAERS Safety Report 8177181-X (Version None)
Quarter: 2012Q1

REPORT INFORMATION
  Report Type: 
  Country: None (occurrence: None)
  Receive Date: 20120124
  Receipt Date: 20111214
  Transmission Date: 20120608
  Serious: No
  Sender: FDA-Public Use
  Company Number: US-007139

PATIENT
  Age: 69 Year
  Sex: Male

DRUGS (7)
  1. FISH OIL [Concomitant]
  2. DEGARELIX (240 MG, 80 MG) [Suspect]
     Indication: PROSTATE CANCER
     Dosage: (240 MG 1X SUBCUTANEOUS) ; (80 MG 1X SUBCUTANEOUS)
     Route: 058
     Dates: start: 20111130, end: 20111130
  3. DEGARELIX (240 MG, 80 MG) [Suspect]
     Indication: PROSTATE CANCER
     Dosage: (240 MG 1X SUBCUTANEOUS) ; (80 MG 1X SUBCUTANEOUS)
     Route: 058
     Dates: start: 20111101, end: 20111101
  4. DEGARELIX (240 MG, 80 MG) [Suspect]
  5. VYTORIN [Concomitant]
  6. ASPIRIN [Concomitant]
  7. SYNTHROID [Concomitant]

REACTIONS (2)
  - ABDOMINAL DISCOMFORT [None]
  - INJECTION SITE REACTION [None]
